FAERS Safety Report 9688321 (Version 1)
Quarter: 2013Q4

REPORT INFORMATION
  Report Type: Spontaneous
  Country: US (occurrence: None)
  Receive Date: 20131113
  Receipt Date: 20131113
  Transmission Date: 20140711
  Serious: No
  Sender: FDA-Public Use
  Company Number: None

PATIENT
  Age: 44 Year
  Sex: Female

DRUGS (1)
  1. DEPAKOTE [Suspect]
     Dates: start: 20120617, end: 20120720

REACTIONS (8)
  - Gallbladder polyp [None]
  - Fatigue [None]
  - Abdominal pain [None]
  - Alanine aminotransferase increased [None]
  - Aspartate aminotransferase increased [None]
  - Biliary tract disorder [None]
  - Cholelithiasis [None]
  - Cholelithiasis [None]
